FAERS Safety Report 25725883 (Version 1)
Quarter: 2025Q3

REPORT INFORMATION
  Report Type: Spontaneous
  Country: US (occurrence: US)
  Receive Date: 20250826
  Receipt Date: 20250826
  Transmission Date: 20251021
  Serious: Yes (Other)
  Sender: RANBAXY
  Company Number: US-SUN PHARMACEUTICAL INDUSTRIES INC-2025R1-524301

PATIENT
  Age: 72 Year
  Sex: Male

DRUGS (5)
  1. ERGOCALCIFEROL [Suspect]
     Active Substance: ERGOCALCIFEROL
     Indication: Calculus urinary
     Route: 065
  2. SODIUM BICARBONATE [Suspect]
     Active Substance: SODIUM BICARBONATE
     Indication: Calculus urinary
     Dosage: 650 MILLIGRAM, TID
     Route: 065
  3. ALLOPURINOL [Concomitant]
     Active Substance: ALLOPURINOL
     Indication: Calculus urinary
     Dosage: 100 MILLIGRAM, QD
     Route: 065
  4. LOSARTAN [Concomitant]
     Active Substance: LOSARTAN
     Indication: Calculus urinary
     Dosage: 100 MILLIGRAM, QD
     Route: 065
  5. SEVELAMER CARBONATE [Concomitant]
     Active Substance: SEVELAMER CARBONATE
     Indication: Calculus urinary
     Dosage: 800 MILLIGRAM, TID
     Route: 065

REACTIONS (2)
  - Nephrolithiasis [Unknown]
  - Calcinosis [Unknown]
